FAERS Safety Report 17817595 (Version 4)
Quarter: 2020Q2

REPORT INFORMATION
  Report Type: Report from Study
  Country: DE (occurrence: DE)
  Receive Date: 20200522
  Receipt Date: 20200625
  Transmission Date: 20200714
  Serious: Yes (Hospitalization)
  Sender: FDA-Public Use
  Company Number: NVSC2020DE128107

PATIENT
  Age: 53 Year
  Sex: Female
  Weight: 52.7 kg

DRUGS (8)
  1. SECUKINUMAB. [Suspect]
     Active Substance: SECUKINUMAB
     Indication: HIDRADENITIS
     Dosage: CODE NOT BROKEN
     Route: 058
     Dates: start: 20190515, end: 20200505
  2. SECUKINUMAB. [Suspect]
     Active Substance: SECUKINUMAB
     Dosage: CODE NOT BROKEN
     Route: 058
     Dates: start: 20200615
  3. FERROSANOL [Concomitant]
     Active Substance: FERROUS GLUCONATE
     Indication: ANAEMIA
     Dosage: UNK
     Route: 065
     Dates: start: 20100101
  4. SPIRULINA [Concomitant]
     Active Substance: SPIRULINA
     Indication: ANAEMIA
     Dosage: UNK
     Route: 065
     Dates: start: 20191030
  5. PARACETAMOL [Concomitant]
     Active Substance: ACETAMINOPHEN
     Indication: CHOLECYSTITIS ACUTE
     Dosage: UNK
     Route: 065
     Dates: start: 20200507, end: 20200507
  6. OCTENISAN [Concomitant]
     Indication: HIDRADENITIS
     Dosage: UNK
     Route: 065
     Dates: start: 20190415
  7. TAZOBAC [Concomitant]
     Active Substance: PIPERACILLIN SODIUM\TAZOBACTAM SODIUM
     Indication: CHOLECYSTITIS ACUTE
     Dosage: UNK
     Route: 065
     Dates: start: 20200507, end: 20200513
  8. CETIRIZINE [Concomitant]
     Active Substance: CETIRIZINE HYDROCHLORIDE
     Indication: RHINITIS ALLERGIC
     Dosage: UNK
     Route: 065
     Dates: start: 19990101

REACTIONS (1)
  - Systemic inflammatory response syndrome [Recovered/Resolved]

NARRATIVE: CASE EVENT DATE: 20200507
